FAERS Safety Report 10082055 (Version 2)
Quarter: 2014Q2

REPORT INFORMATION
  Report Type: Spontaneous
  Country: US (occurrence: US)
  Receive Date: 20140416
  Receipt Date: 20140522
  Transmission Date: 20141212
  Serious: Yes (Other)
  Sender: FDA-Public Use
  Company Number: US-BAYER-2014-054654

PATIENT
  Sex: Female

DRUGS (2)
  1. MIRENA [Suspect]
     Dosage: 20 MCG/24HR, CONT
     Route: 015
  2. ESSURE [Suspect]

REACTIONS (5)
  - Device dislocation [None]
  - Device dislocation [Unknown]
  - Pregnancy with contraceptive device [Unknown]
  - Device ineffective [Unknown]
  - Abdominal adhesions [Unknown]
